FAERS Safety Report 10145719 (Version 2)
Quarter: 2014Q2

REPORT INFORMATION
  Report Type: Report from Study
  Country: FR (occurrence: FR)
  Receive Date: 20140501
  Receipt Date: 20140530
  Transmission Date: 20141212
  Serious: Yes (Hospitalization, Other)
  Sender: FDA-Public Use
  Company Number: FR-MPIJNJ-2014JNJ003133

PATIENT
  Sex: 0

DRUGS (4)
  1. VELCADE [Suspect]
     Indication: PLASMA CELL MYELOMA
     Route: 058
  2. CYCLOPHOSPHAMIDE [Suspect]
     Indication: PLASMA CELL MYELOMA
     Dosage: 500 MG, CYCLIC
     Route: 042
  3. CYCLOPHOSPHAMIDE [Suspect]
     Dosage: 3 G, UNK
     Route: 065
     Dates: start: 20140409, end: 20140410
  4. DEXAMETHASONE [Suspect]
     Indication: PLASMA CELL MYELOMA
     Route: 048

REACTIONS (1)
  - Febrile bone marrow aplasia [Recovered/Resolved]
